FAERS Safety Report 4875006-9 (Version None)
Quarter: 2006Q1

REPORT INFORMATION
  Report Type: 
  Country: None (occurrence: None)
  Receive Date: 20060104
  Receipt Date: 20051221
  Transmission Date: 20060701
  Serious: Yes (Hospitalization, Other)
  Sender: FDA-Public Use
  Company Number: 2005144215

PATIENT
  Age: 60 Year
  Sex: Male

DRUGS (5)
  1. LYRICA [Suspect]
     Indication: NEURALGIA
     Dosage: 150 MG (75 MG, 2 IN 1 D), ORAL; 31-04-2005
     Route: 048
     Dates: start: 20050401, end: 20050602
  2. GLICLAZIDE (GLICLAZIDE) [Concomitant]
  3. METFORMIN HCL [Concomitant]
  4. ASCAL (ACETYLSALICYLATE CALCIUM) [Concomitant]
  5. ACETAMINOPHEN [Concomitant]

REACTIONS (9)
  - BLOOD GLUCOSE INCREASED [None]
  - BLOOD PRESSURE INCREASED [None]
  - HEADACHE [None]
  - HEART RATE INCREASED [None]
  - HYPERTHERMIA [None]
  - HYPOREFLEXIA [None]
  - RESPIRATORY DISORDER [None]
  - SPEECH DISORDER [None]
  - THROMBOCYTOPENIA [None]
